FAERS Safety Report 9098570 (Version 1)
Quarter: 2013Q1

REPORT INFORMATION
  Report Type: Spontaneous
  Country: US (occurrence: US)
  Receive Date: 20130213
  Receipt Date: 20130213
  Transmission Date: 20140127
  Serious: Yes (Death)
  Sender: FDA-Public Use
  Company Number: US-ELI_LILLY_AND_COMPANY-US201302001787

PATIENT
  Age: 23 Year
  Sex: Male

DRUGS (5)
  1. OLANZAPINE [Suspect]
  2. ETHANOL [Concomitant]
  3. ZOLPIDEM [Concomitant]
  4. LORAZEPAM [Concomitant]
  5. DROPERIDOL [Concomitant]

REACTIONS (1)
  - Drug abuse [Fatal]
